FAERS Safety Report 17419931 (Version 2)
Quarter: 2021Q2

REPORT INFORMATION
  Report Type: Spontaneous
  Country: US (occurrence: US)
  Receive Date: 20200214
  Receipt Date: 20210528
  Transmission Date: 20210716
  Serious: Yes (Hospitalization)
  Sender: FDA-Public Use
  Company Number: US-PFIZER INC-2020066786

PATIENT
  Age: 50 Year
  Sex: Female

DRUGS (1)
  1. LYRICA [Suspect]
     Active Substance: PREGABALIN
     Indication: MUSCULAR DYSTROPHY
     Dosage: UNK

REACTIONS (5)
  - Withdrawal syndrome [Unknown]
  - Endometriosis [Unknown]
  - Bedridden [Unknown]
  - Gait disturbance [Unknown]
  - Off label use [Unknown]
